FAERS Safety Report 18541277 (Version 2)
Quarter: 2020Q4

REPORT INFORMATION
  Report Type: Spontaneous
  Country: PL (occurrence: PL)
  Receive Date: 20201124
  Receipt Date: 20201130
  Transmission Date: 20210114
  Serious: Yes (Death)
  Sender: FDA-Public Use
  Company Number: PL-FRESENIUS KABI-FK202012433

PATIENT
  Age: 30 Year
  Sex: Female

DRUGS (1)
  1. VANCOMYCIN KABI (NOT SPECIFIED) [Suspect]
     Active Substance: VANCOMYCIN
     Indication: ABDOMINAL ABSCESS
     Route: 065

REACTIONS (3)
  - Medication error [Unknown]
  - Drug resistance [Unknown]
  - Drug ineffective [Fatal]
